FAERS Safety Report 5038802-3 (Version None)
Quarter: 2006Q2

REPORT INFORMATION
  Report Type: 
  Country: None (occurrence: None)
  Receive Date: 20060626
  Receipt Date: 20060626
  Transmission Date: 20061013
  Serious: No
  Sender: FDA-Public Use
  Company Number: None

PATIENT
  Age: 34 Year
  Sex: Female
  Weight: 49.8957 kg

DRUGS (5)
  1. LYRICA [Suspect]
     Indication: NEURALGIA
     Dosage: 75 MG ONE TABLET TWICE DAILY MOUTH
     Dates: start: 20060224, end: 20060501
  2. ACUPUNCTURE [Concomitant]
  3. LIDODERM PATCH [Concomitant]
  4. LORCET-HD [Concomitant]
  5. XANAX [Concomitant]

REACTIONS (3)
  - MUSCLE ATROPHY [None]
  - SENSORY DISTURBANCE [None]
  - SKIN DISORDER [None]
